FAERS Safety Report 6039265-1 (Version None)
Quarter: 2009Q1

REPORT INFORMATION
  Report Type: 
  Country: None (occurrence: None)
  Receive Date: 20090115
  Receipt Date: 20090112
  Transmission Date: 20090719
  Serious: Yes (Death)
  Sender: FDA-Public Use
  Company Number: PHBS2009FR00480

PATIENT
  Age: 49 Year
  Sex: Female

DRUGS (10)
  1. CYCLOSPORINE [Suspect]
     Indication: RENAL AND LIVER TRANSPLANT
     Dosage: 250 MG, BID
  2. BASILIXIMAB [Suspect]
     Indication: RENAL AND LIVER TRANSPLANT
     Dosage: 20 MG, ONCE/SINGLE
  3. BASILIXIMAB [Suspect]
     Dosage: 20 MG, ONCE/SINGLE
  4. PREDNISOLONE [Suspect]
     Dosage: 10 MG//KG/DAY
  5. PREDNISOLONE [Suspect]
     Dosage: 20 MG/KG/DAY
  6. MYCOPHENOLATE MOFETIL [Suspect]
     Dosage: 500 MG, TID
  7. RED BLOOD CELLS [Concomitant]
  8. AMOXICILLIN [Concomitant]
     Dosage: 1 G, BID
  9. PRISTINAMYCIN [Concomitant]
     Dosage: 1 G, TID
  10. OFLOXACIN [Concomitant]
     Dosage: 200 MG, BID

REACTIONS (15)
  - CONFUSIONAL STATE [None]
  - DISSEMINATED INTRAVASCULAR COAGULATION [None]
  - ERYTHROPHAGOCYTOSIS [None]
  - HEPATIC FUNCTION ABNORMAL [None]
  - HISTIOCYTOSIS HAEMATOPHAGIC [None]
  - HUMAN HERPESVIRUS 6 INFECTION [None]
  - HYPONATRAEMIA [None]
  - HYPOXIA [None]
  - LEUKOPENIA [None]
  - LUNG INFILTRATION [None]
  - MULTI-ORGAN FAILURE [None]
  - NERVOUS SYSTEM DISORDER [None]
  - PYREXIA [None]
  - RASH [None]
  - THROMBOCYTOPENIA [None]
